FAERS Safety Report 8360269-8 (Version None)
Quarter: 2012Q2

REPORT INFORMATION
  Report Type: 
  Country: None (occurrence: None)
  Receive Date: 20120515
  Receipt Date: 20120504
  Transmission Date: 20120825
  Serious: Yes (Disabling)
  Sender: FDA-Public Use
  Company Number: FR-SANOFI-AVENTIS-2012SA031852

PATIENT
  Age: 57 Year
  Sex: Male

DRUGS (3)
  1. PLAVIX [Suspect]
     Route: 048
     Dates: start: 20050101
  2. TENORMIN [Suspect]
     Route: 048
     Dates: start: 20050101
  3. ATORVASTATIN [Suspect]
     Route: 048
     Dates: start: 19980101

REACTIONS (1)
  - TENDON RUPTURE [None]
